FAERS Safety Report 5588192-2 (Version None)
Quarter: 2008Q1

REPORT INFORMATION
  Report Type: 
  Country: None (occurrence: None)
  Receive Date: 20080109
  Receipt Date: 20080109
  Transmission Date: 20080703
  Serious: Yes (Other)
  Sender: FDA-Public Use
  Company Number: None

PATIENT
  Age: 51 Year
  Sex: Male
  Weight: 99.7913 kg

DRUGS (1)
  1. SNORESTOP EXTINGUISHER   GREEN PHARMACEUTICALS [Suspect]
     Indication: SNORING
     Dosage: 4 SPRAYS TOTAL  BEFORE BED  PO
     Route: 048
     Dates: start: 20021229, end: 20080103

REACTIONS (3)
  - BLOOD PRESSURE INCREASED [None]
  - FEELING ABNORMAL [None]
  - HEART RATE INCREASED [None]
